FAERS Safety Report 9577155 (Version 1)
Quarter: 2013Q4

REPORT INFORMATION
  Report Type: Spontaneous
  Country: US (occurrence: US)
  Receive Date: 20131001
  Receipt Date: 20131001
  Transmission Date: 20140711
  Serious: No
  Sender: FDA-Public Use
  Company Number: US-AMGEN-USASP2013006798

PATIENT
  Sex: Male

DRUGS (2)
  1. ENBREL [Suspect]
     Indication: PSORIASIS
     Dosage: 50 MG, QWK
     Dates: start: 20070315, end: 2010
  2. HUMIRA [Concomitant]
     Dosage: 40 EVERY 2 WEEKS
     Dates: start: 2010

REACTIONS (1)
  - Psoriasis [Not Recovered/Not Resolved]
